FAERS Safety Report 14795017 (Version 1)
Quarter: 2018Q2

REPORT INFORMATION
  Report Type: Report from Study
  Country: US (occurrence: US)
  Receive Date: 20180423
  Receipt Date: 20180423
  Transmission Date: 20180711
  Serious: Yes (Other)
  Sender: FDA-Public Use
  Company Number: US-ALLERGAN-1811695US

PATIENT
  Age: 52 Year
  Sex: Female

DRUGS (5)
  1. BOTULINUM TOXIN TYPE A - GENERAL (9060X) [Suspect]
     Active Substance: BOTULINUM TOXIN TYPE A
     Indication: BLEPHAROSPASM
     Dosage: UNK UNK, SINGLE
     Route: 030
     Dates: start: 2011, end: 2011
  2. ATIVAN [Concomitant]
     Active Substance: LORAZEPAM
     Indication: EYE DISORDER
     Dosage: UNK UNK, PRN
     Route: 048
  3. BOTULINUM TOXIN TYPE A - GENERAL (9060X) [Suspect]
     Active Substance: BOTULINUM TOXIN TYPE A
     Indication: MEIGE^S SYNDROME
  4. LOSARTAN. [Concomitant]
     Active Substance: LOSARTAN
     Indication: HYPERTENSION
     Dosage: 25 MG, QD
     Route: 048
  5. METOPROLOL. [Concomitant]
     Active Substance: METOPROLOL
     Indication: HYPERTENSION
     Dosage: 25 MG, QD
     Route: 048

REACTIONS (5)
  - Eyelid ptosis [Recovered/Resolved]
  - Bladder operation [Recovered/Resolved]
  - Off label use [Unknown]
  - Medical device removal [Recovered/Resolved]
  - Dry eye [Not Recovered/Not Resolved]

NARRATIVE: CASE EVENT DATE: 2017
